FAERS Safety Report 9448029 (Version 1)
Quarter: 2013Q3

REPORT INFORMATION
  Report Type: Spontaneous
  Country: US (occurrence: US)
  Receive Date: 20130808
  Receipt Date: 20130808
  Transmission Date: 20140515
  Serious: No
  Sender: FDA-Public Use
  Company Number: US-BAYER-2013-092918

PATIENT
  Sex: Female
  Weight: 68 kg

DRUGS (10)
  1. BETASERON [Suspect]
     Dosage: 0.3 MG, QOD
     Route: 058
     Dates: start: 2007
  2. DOXYCYCLIN [DOXYCYCLINE] [Concomitant]
  3. XANAX [Concomitant]
     Dosage: 0.5 MG, UNK
  4. PREMARIN [Concomitant]
     Dosage: 0.3 MG, UNK
  5. BENTYL [Concomitant]
     Dosage: 20 MG, UNK
  6. NEURONTIN [Concomitant]
     Dosage: 100 MG, UNK
  7. BACLOFEN [Concomitant]
     Dosage: 10 MG, UNK
  8. PRILOSEC [Concomitant]
     Dosage: 10 MG, UNK
  9. VITAMIN D [Concomitant]
     Dosage: 1000 U, UNK
  10. PERCOCET [Concomitant]
     Dosage: 7.5-500

REACTIONS (4)
  - Vitamin D decreased [Unknown]
  - Drug ineffective [Unknown]
  - Pyrexia [Unknown]
  - Influenza like illness [Unknown]
